FAERS Safety Report 9949856 (Version 1)
Quarter: 2014Q1

REPORT INFORMATION
  Report Type: Report from Study
  Country: US (occurrence: US)
  Receive Date: 20140304
  Receipt Date: 20140304
  Transmission Date: 20141002
  Serious: No
  Sender: FDA-Public Use
  Company Number: US-ABBVIE-13P-163-1069562-00

PATIENT
  Sex: Female
  Weight: 92.16 kg

DRUGS (2)
  1. HUMIRA [Suspect]
     Indication: PSORIASIS
     Dosage: LOADING DOSE
     Dates: start: 201203, end: 201203
  2. HUMIRA [Suspect]
     Dosage: 1 WEEK AFTER INITIAL DOSE

REACTIONS (3)
  - Skin burning sensation [Recovered/Resolved]
  - Skin burning sensation [Recovered/Resolved]
  - Pain in extremity [Recovered/Resolved]
